FAERS Safety Report 15022462 (Version 3)
Quarter: 2018Q3

REPORT INFORMATION
  Report Type: Spontaneous
  Country: JP (occurrence: JP)
  Receive Date: 20180618
  Receipt Date: 20180724
  Transmission Date: 20181010
  Serious: Yes (Life-Threatening, Hospitalization, Other)
  Sender: FDA-Public Use
  Company Number: JP-TERSERA THERAPEUTICS, LLC-2049554

PATIENT
  Age: 82 Year
  Sex: Male
  Weight: 65 kg

DRUGS (10)
  1. CRESTOR [Suspect]
     Active Substance: ROSUVASTATIN CALCIUM
     Route: 048
  2. PLAVIX [Concomitant]
     Active Substance: CLOPIDOGREL BISULFATE
     Route: 048
  3. NOVORAPID [Concomitant]
     Active Substance: INSULIN ASPART
     Route: 058
  4. ZOLADEX [Suspect]
     Active Substance: GOSERELIN ACETATE
     Indication: PROSTATE CANCER
     Route: 058
     Dates: start: 20180424, end: 20180424
  5. COVERSYL [Concomitant]
     Active Substance: PERINDOPRIL
     Route: 048
  6. ARTIST [Concomitant]
     Active Substance: CARVEDILOL
     Route: 048
  7. BICALUTAMIDE. [Concomitant]
     Active Substance: BICALUTAMIDE
     Route: 048
     Dates: start: 20180427
  8. EPADEL [Concomitant]
     Active Substance: ICOSAPENT
     Route: 048
  9. NOVORAPID [Concomitant]
     Active Substance: INSULIN ASPART
     Route: 058
  10. BAYASPIRIN [Concomitant]
     Active Substance: ASPIRIN
     Route: 048

REACTIONS (7)
  - Decreased appetite [Not Recovered/Not Resolved]
  - Coma [Recovered/Resolved]
  - Fall [Recovered/Resolved]
  - Back pain [Recovering/Resolving]
  - Loss of consciousness [Recovered/Resolved]
  - Hyperglycaemia [Recovering/Resolving]
  - Cold sweat [Recovered/Resolved]

NARRATIVE: CASE EVENT DATE: 20180424
